FAERS Safety Report 5245122-0 (Version None)
Quarter: 2007Q1

REPORT INFORMATION
  Report Type: 
  Country: None (occurrence: None)
  Receive Date: 20070223
  Receipt Date: 20070214
  Transmission Date: 20070707
  Serious: Yes (Other)
  Sender: FDA-Public Use
  Company Number: JP-BRISTOL-MYERS SQUIBB COMPANY-13579412

PATIENT
  Age: 60 Year
  Sex: Male

DRUGS (8)
  1. ABILIFY [Suspect]
     Indication: SCHIZOPHRENIA
     Dosage: THERAPY DATES: 6MG 03 TO 16-JUL-2006/12MG 17 TO 30-JUL-2006/18MG 31-JUL-2006 TO 02-OCT-2006
     Route: 048
     Dates: start: 20060703, end: 20061002
  2. NITRAZEPAM [Concomitant]
     Indication: INSOMNIA
     Route: 048
  3. CLOXAZOLAM [Concomitant]
     Indication: MUSCLE TIGHTNESS
     Route: 048
  4. CLOXAZOLAM [Concomitant]
     Indication: ANXIETY
     Route: 048
  5. DIAZEPAM [Concomitant]
     Indication: MUSCLE TIGHTNESS
     Route: 048
  6. DIAZEPAM [Concomitant]
     Indication: ANXIETY
     Route: 048
  7. MAGNESIUM OXIDE [Concomitant]
     Indication: CONSTIPATION
     Route: 048
  8. SENNOSIDE [Concomitant]
     Indication: CONSTIPATION
     Route: 048

REACTIONS (1)
  - PANCYTOPENIA [None]
